FAERS Safety Report 4911198-0 (Version None)
Quarter: 2006Q1

REPORT INFORMATION
  Report Type: 
  Country: None (occurrence: None)
  Receive Date: 20060209
  Receipt Date: 20060131
  Transmission Date: 20060701
  Serious: Yes (Hospitalization)
  Sender: FDA-Public Use
  Company Number: TCI2005A01412

PATIENT
  Age: 74 Year
  Sex: Female

DRUGS (6)
  1. ACTOS [Suspect]
     Indication: DIABETES MELLITUS
     Dosage: 15 MG (15 MG 1 IN 1 D)
     Route: 048
     Dates: start: 20000311, end: 20050301
  2. BASEN TABLETS 0.2 (VOGLIBOSE) [Concomitant]
  3. BAYASPIRIN (ACETYLSALCYLIC ACID) [Concomitant]
  4. CAPTOPRIL-R (CAPTOPRIL) [Concomitant]
  5. AMLODIPINE BESYLATE [Concomitant]
  6. GLYBURIDE [Concomitant]

REACTIONS (4)
  - ATRIOVENTRICULAR BLOCK COMPLETE [None]
  - BRADYCARDIA [None]
  - CARDIOMEGALY [None]
  - OEDEMA PERIPHERAL [None]
